FAERS Safety Report 9671820 (Version 3)
Quarter: 2013Q4

REPORT INFORMATION
  Report Type: Report from Study
  Country: JP (occurrence: JP)
  Receive Date: 20131106
  Receipt Date: 20131226
  Transmission Date: 20140711
  Serious: Yes (Hospitalization)
  Sender: FDA-Public Use
  Company Number: JP-B.I. PHARMACEUTICALS,INC./RIDGEFIELD-2013-BI-29388NB

PATIENT
  Age: 71 Year
  Sex: Male

DRUGS (9)
  1. MIRAPEX [Suspect]
     Indication: PARKINSON^S DISEASE
     Dosage: 1.5 MG
     Route: 048
     Dates: start: 20120828, end: 20130909
  2. MIRAPEX [Suspect]
     Dosage: 2.25 MG
     Route: 048
     Dates: start: 20130910
  3. BLOPRESS [Concomitant]
     Dosage: 8 MG
     Route: 048
  4. BLOPRESS [Concomitant]
     Dosage: 4 MG
     Route: 048
     Dates: start: 20130507
  5. EXCEGRAN [Concomitant]
     Indication: PARKINSON^S DISEASE
     Dosage: 50 MG
     Route: 048
  6. MENESIT [Concomitant]
     Indication: PARKINSON^S DISEASE
     Dosage: 200 MG
     Route: 048
  7. MENESIT [Concomitant]
     Dosage: 300 MG
     Route: 048
     Dates: start: 20130618
  8. AROTINOLOL HYDROCHLORIDE [Concomitant]
     Indication: PARKINSON^S DISEASE
     Dosage: 20 MG
     Route: 048
     Dates: end: 20130325
  9. MAGMITT [Concomitant]
     Indication: PARKINSON^S DISEASE
     Dosage: 330 MG
     Route: 048
     Dates: start: 20120925

REACTIONS (4)
  - Urinary tract infection [Recovered/Resolved]
  - Cystitis noninfective [Recovered/Resolved]
  - Atrioventricular block first degree [Unknown]
  - Parkinsonism [Recovered/Resolved]
